FAERS Safety Report 5653872-7 (Version None)
Quarter: 2008Q1

REPORT INFORMATION
  Report Type: 
  Country: None (occurrence: None)
  Receive Date: 20080306
  Receipt Date: 20080229
  Transmission Date: 20080703
  Serious: Yes (Death)
  Sender: FDA-Public Use
  Company Number: US-ASTRAZENECA-2008AC00585

PATIENT
  Age: 61 Year
  Sex: Male

DRUGS (2)
  1. CEFOTETAN [Suspect]
     Indication: INFECTED SKIN ULCER
  2. CLINDAMYCIN HCL [Suspect]
     Indication: PYREXIA

REACTIONS (4)
  - CARBOXYHAEMOGLOBIN INCREASED [None]
  - HAEMOLYTIC ANAEMIA [None]
  - HEPATIC FAILURE [None]
  - RENAL FAILURE [None]
